FAERS Safety Report 5002868-7 (Version None)
Quarter: 2006Q2

REPORT INFORMATION
  Report Type: 
  Country: None (occurrence: None)
  Receive Date: 20060516
  Receipt Date: 20060509
  Transmission Date: 20061013
  Serious: Yes (Other)
  Sender: FDA-Public Use
  Company Number: 2006AP02179

PATIENT
  Age: 59 Year
  Sex: Female

DRUGS (7)
  1. MEROPENEM [Suspect]
     Route: 042
  2. DOCETAXEL [Suspect]
  3. VANCOCIN [Suspect]
     Indication: SEPSIS
     Route: 042
  4. VANCOCIN [Suspect]
     Route: 048
  5. NORADRENALINE [Concomitant]
  6. VASOPRESSIN [Concomitant]
  7. FRUSEMIDE [Concomitant]

REACTIONS (3)
  - DYSGEUSIA [None]
  - NEPHRITIS [None]
  - RENAL IMPAIRMENT [None]
